FAERS Safety Report 10160109 (Version 2)
Quarter: 2014Q2

REPORT INFORMATION
  Report Type: Spontaneous
  Country: US (occurrence: FR)
  Receive Date: 20140508
  Receipt Date: 20140617
  Transmission Date: 20141212
  Serious: Yes (Hospitalization)
  Sender: FDA-Public Use
  Company Number: 2014SP002497

PATIENT
  Age: 73 Year
  Sex: Male

DRUGS (11)
  1. DOXORUBICIN [Suspect]
     Indication: PRODUCT USED FOR UNKNOWN INDICATION
     Dates: start: 20131203
  2. PREDNISONE [Suspect]
     Indication: PRODUCT USED FOR UNKNOWN INDICATION
     Dates: start: 20131203
  3. VINCRISTINE SULFATE [Suspect]
     Indication: PRODUCT USED FOR UNKNOWN INDICATION
     Dates: start: 20131203
  4. CYCLOPHOSPHAMIDE [Suspect]
     Indication: PRODUCT USED FOR UNKNOWN INDICATION
     Dates: start: 20131203
  5. PREDNISONE [Concomitant]
  6. OMEPRAZOLE [Concomitant]
  7. CALCIUM CARBONATE [Concomitant]
  8. CITRIC ACID [Concomitant]
  9. CELIPROLOL [Concomitant]
  10. REPAGLINIDE [Concomitant]
  11. ACETORPHAN [Concomitant]

REACTIONS (7)
  - Agranulocytosis [Unknown]
  - Thrombocytopenia [Unknown]
  - Anaemia [Unknown]
  - Diarrhoea [Unknown]
  - Dehydration [Unknown]
  - General physical health deterioration [Unknown]
  - Decreased appetite [Unknown]
